FAERS Safety Report 18018415 (Version 3)
Quarter: 2020Q4

REPORT INFORMATION
  Report Type: Spontaneous
  Country: GB (occurrence: VN)
  Receive Date: 20200714
  Receipt Date: 20201120
  Transmission Date: 20210113
  Serious: Yes (Other)
  Sender: FDA-Public Use
  Company Number: VN-ASTELLAS-2020US022641

PATIENT
  Age: 67 Year
  Sex: Male
  Weight: 65 kg

DRUGS (5)
  1. TARCEVA [Suspect]
     Active Substance: ERLOTINIB HYDROCHLORIDE
     Indication: GENE MUTATION
  2. TARCEVA [Suspect]
     Active Substance: ERLOTINIB HYDROCHLORIDE
     Indication: LUNG NEOPLASM MALIGNANT
     Dosage: UNK UNK, ONCE DAILY
     Route: 048
     Dates: start: 20190310, end: 202002
  3. TAGRISSO [Suspect]
     Active Substance: OSIMERTINIB
     Indication: GENE MUTATION
  4. TAGRISSO [Suspect]
     Active Substance: OSIMERTINIB
     Indication: LUNG NEOPLASM MALIGNANT
     Dosage: 1 TABLET PER DAY
     Route: 048
     Dates: start: 20200319
  5. FUCOIDAN [Suspect]
     Active Substance: HERBALS\LAMINARIA JAPONICA
     Indication: PRODUCT USED FOR UNKNOWN INDICATION
     Dosage: 200 ML, ONCE DAILY (100ML JAR)
     Route: 065

REACTIONS (8)
  - Colitis [Unknown]
  - Drug resistance [Unknown]
  - Insomnia [Unknown]
  - Asthenia [Unknown]
  - Neoplasm progression [Unknown]
  - Drug resistance [Unknown]
  - Pain [Recovered/Resolved]
  - Ill-defined disorder [Recovered/Resolved]

NARRATIVE: CASE EVENT DATE: 201912
